FAERS Safety Report 8909780 (Version 2)
Quarter: 2012Q4

REPORT INFORMATION
  Report Type: 
  Country: US (occurrence: US)
  Receive Date: 20121115
  Receipt Date: 20121221
  Transmission Date: 20130627
  Serious: Yes (Hospitalization)
  Sender: FDA-Public Use
  Company Number: US-PFIZER INC-2012281458

PATIENT
  Age: 82 Year
  Sex: Male
  Weight: 77.1 kg

DRUGS (2)
  1. LATANOPROST [Suspect]
     Indication: GLAUCOMA
     Dosage: 1 Gtt, 2x/day
     Route: 047
     Dates: start: 2011
  2. LATANOPROST [Suspect]
     Dosage: 1 Gtt, daily
     Route: 047
     Dates: end: 20121108

REACTIONS (2)
  - Arthropathy [Unknown]
  - Overdose [Recovered/Resolved]
